FAERS Safety Report 24886414 (Version 7)
Quarter: 2025Q2

REPORT INFORMATION
  Report Type: Spontaneous
  Country: IN (occurrence: IN)
  Receive Date: 20250126
  Receipt Date: 20250505
  Transmission Date: 20250717
  Serious: Yes (Other)
  Sender: GLENMARK
  Company Number: IN-GLENMARK PHARMACEUTICALS-2025GMK097194

PATIENT

DRUGS (3)
  1. HYDROCHLOROTHIAZIDE\TELMISARTAN [Suspect]
     Active Substance: HYDROCHLOROTHIAZIDE\TELMISARTAN
     Indication: Blood pressure abnormal
     Dosage: 1 DOSAGE FORM, OD
     Route: 048
     Dates: start: 20241122
  2. HYDROCHLOROTHIAZIDE\TELMISARTAN [Suspect]
     Active Substance: HYDROCHLOROTHIAZIDE\TELMISARTAN
     Dosage: 1 DOSAGE FORM, OD (ANOTHER BATCH)
     Route: 048
     Dates: start: 20250111, end: 20250112
  3. HYDROCHLOROTHIAZIDE\TELMISARTAN [Suspect]
     Active Substance: HYDROCHLOROTHIAZIDE\TELMISARTAN
     Dosage: 1 DOSAGE FORM, OD (ANOTHER BATCH)
     Route: 048
     Dates: start: 2025

REACTIONS (6)
  - Asphyxia [Recovered/Resolved]
  - Hypertension [Recovered/Resolved]
  - Suspected counterfeit product [Unknown]
  - Discomfort [Recovered/Resolved]
  - Product barcode issue [Unknown]
  - Drug ineffective [Unknown]

NARRATIVE: CASE EVENT DATE: 20250111
